FAERS Safety Report 6061928-2 (Version None)
Quarter: 2009Q1

REPORT INFORMATION
  Report Type: 
  Country: None (occurrence: None)
  Receive Date: 20090202
  Receipt Date: 20090129
  Transmission Date: 20090719
  Serious: Yes (Death, Disabling)
  Sender: FDA-Public Use
  Company Number: PHHY2008JP24569

PATIENT
  Sex: Male
  Weight: 60 kg

DRUGS (10)
  1. DIOVAN [Suspect]
     Indication: HYPERTENSION
     Dosage: 80 MG, QD
     Route: 048
     Dates: start: 20071015, end: 20080822
  2. TAKEPRON [Concomitant]
     Dosage: 15 MG
     Route: 048
     Dates: start: 20040205
  3. BENET [Concomitant]
     Dosage: 2.5 MG
     Route: 048
     Dates: start: 20060101
  4. PRAVASTATIN [Concomitant]
     Dosage: 5 MG
     Route: 048
     Dates: start: 20000101
  5. CLARUTE [Concomitant]
     Dosage: 60 MG
     Route: 048
  6. PIROAN [Concomitant]
     Dosage: 50 MG
     Route: 048
     Dates: start: 20000101
  7. NITOROL [Concomitant]
     Dosage: 10 MG
     Route: 048
     Dates: start: 20000101
  8. MERCAZOLE [Concomitant]
     Dosage: 5 MG
     Route: 048
     Dates: start: 20050401
  9. HARNAL D [Concomitant]
     Dosage: 0.2 MG
     Route: 048
     Dates: start: 20030228
  10. BOFU-TSUSHO-SAN [Concomitant]
     Dosage: 5 G
     Route: 048
     Dates: start: 20050401

REACTIONS (6)
  - CAROTID ARTERY OCCLUSION [None]
  - CAROTID INTIMA-MEDIA THICKNESS INCREASED [None]
  - CEREBRAL INFARCTION [None]
  - DUODENAL ULCER PERFORATION [None]
  - HAEMATEMESIS [None]
  - HEMIPLEGIA [None]
